FAERS Safety Report 23732272 (Version 1)
Quarter: 2024Q2

REPORT INFORMATION
  Report Type: Spontaneous
  Country: FR (occurrence: FR)
  Receive Date: 20240411
  Receipt Date: 20240411
  Transmission Date: 20240716
  Serious: Yes (Death)
  Sender: FDA-Public Use
  Company Number: None

PATIENT
  Age: 77 Year
  Sex: Female
  Weight: 60 kg

DRUGS (7)
  1. CYTARABINE [Suspect]
     Active Substance: CYTARABINE
     Indication: Adult T-cell lymphoma/leukaemia
     Dosage: 40 MG, 1X/DAY
     Route: 037
     Dates: start: 20240215, end: 20240215
  2. DOXORUBICIN HYDROCHLORIDE [Suspect]
     Active Substance: DOXORUBICIN HYDROCHLORIDE
     Indication: Adult T-cell lymphoma/leukaemia
     Dosage: 82 MG, 1X/DAY
     Route: 042
     Dates: start: 20240215, end: 20240215
  3. VINCRISTINE SULFATE [Suspect]
     Active Substance: VINCRISTINE SULFATE
     Indication: Adult T-cell lymphoma/leukaemia
     Dosage: 2 MG, 1X/DAY
     Route: 042
     Dates: start: 20240209, end: 20240209
  4. METHOTREXATE SODIUM [Suspect]
     Active Substance: METHOTREXATE SODIUM
     Indication: Adult T-cell lymphoma/leukaemia
     Dosage: 2450 MG, 1X/DAY
     Route: 042
     Dates: start: 20240216, end: 20240216
  5. METHOTREXATE SODIUM [Suspect]
     Active Substance: METHOTREXATE SODIUM
     Dosage: 15 MG
     Route: 037
     Dates: start: 20240215, end: 20240215
  6. CYCLOPHOSPHAMIDE [Suspect]
     Active Substance: CYCLOPHOSPHAMIDE
     Indication: Adult T-cell lymphoma/leukaemia
     Dosage: 1222 MG, 1X/DAY
     Route: 042
     Dates: start: 20240215, end: 20240215
  7. CYCLOPHOSPHAMIDE [Suspect]
     Active Substance: CYCLOPHOSPHAMIDE
     Dosage: 480 MG, 1X/DAY
     Route: 042
     Dates: start: 20240209, end: 20240209

REACTIONS (4)
  - Pancytopenia [Fatal]
  - Chemotherapeutic drug level increased [Fatal]
  - Renal failure [Fatal]
  - Off label use [Unknown]

NARRATIVE: CASE EVENT DATE: 20240201
